FAERS Safety Report 19968848 (Version 1)
Quarter: 2021Q4

REPORT INFORMATION
  Report Type: Spontaneous
  Country: CA (occurrence: CA)
  Receive Date: 20211019
  Receipt Date: 20211019
  Transmission Date: 20220303
  Serious: Yes (Hospitalization, Other)
  Sender: FDA-Public Use
  Company Number: CA-BRISTOL-MYERS SQUIBB COMPANY-BMS-2021-106148

PATIENT
  Age: 79 Year
  Sex: Male

DRUGS (2)
  1. ELIQUIS [Suspect]
     Active Substance: APIXABAN
     Indication: Cerebrovascular accident prophylaxis
     Route: 065
  2. INDOMETHACIN [Suspect]
     Active Substance: INDOMETHACIN
     Indication: Gout
     Dosage: 50 MILLIGRAM,2 EVERY 1 DAYS
     Route: 048

REACTIONS (7)
  - Diarrhoea haemorrhagic [Unknown]
  - Drug interaction [Unknown]
  - Gastrointestinal haemorrhage [Unknown]
  - Haemoglobin decreased [Unknown]
  - Melaena [Unknown]
  - Petechiae [Unknown]
  - Platelet count decreased [Unknown]
